FAERS Safety Report 5403460-2 (Version None)
Quarter: 2007Q3

REPORT INFORMATION
  Report Type: 
  Country: None (occurrence: None)
  Receive Date: 20070730
  Receipt Date: 20070723
  Transmission Date: 20080115
  Serious: Yes (Other)
  Sender: FDA-Public Use
  Company Number: 2007SP010455

PATIENT
  Age: 65 Year
  Sex: Male
  Weight: 70 kg

DRUGS (6)
  1. VIRAFERONPEG [Suspect]
     Indication: HEPATITIS C
     Dosage: 1 DF; QW;
     Dates: start: 20070427, end: 20070620
  2. REBETOL [Suspect]
     Indication: HEPATITIS C
     Dosage: 800 MG;QD;PO
     Route: 048
     Dates: start: 20070427, end: 20070620
  3. SOTALOL HYDROCHLORIDE [Concomitant]
  4. AMLODIPINE [Concomitant]
  5. RENITEC [Concomitant]
  6. KARDEGIC [Concomitant]

REACTIONS (8)
  - AGEUSIA [None]
  - ASTHENIA [None]
  - DEPRESSION [None]
  - FATIGUE [None]
  - HYPERAESTHESIA [None]
  - HYPERHIDROSIS [None]
  - MYALGIA [None]
  - WEIGHT DECREASED [None]
